FAERS Safety Report 11749151 (Version 2)
Quarter: 2016Q3

REPORT INFORMATION
  Report Type: Report from Study
  Country: CA (occurrence: CA)
  Receive Date: 20151118
  Receipt Date: 20160830
  Transmission Date: 20161109
  Serious: Yes (Other)
  Sender: FDA-Public Use
  Company Number: CA-ABBVIE-15K-028-1500282-00

PATIENT
  Age: 50 Year
  Sex: Female
  Weight: 73.5 kg

DRUGS (1)
  1. HUMIRA [Suspect]
     Active Substance: ADALIMUMAB
     Indication: RHEUMATOID ARTHRITIS
     Route: 058
     Dates: start: 20150526, end: 20150707

REACTIONS (6)
  - Rash pustular [Unknown]
  - Dermatitis psoriasiform [Unknown]
  - Skin mass [Unknown]
  - Rash erythematous [Unknown]
  - Rash [Recovering/Resolving]
  - Skin exfoliation [Unknown]

NARRATIVE: CASE EVENT DATE: 20150714
